FAERS Safety Report 13986370 (Version 2)
Quarter: 2019Q4

REPORT INFORMATION
  Report Type: Other
  Country: GB (occurrence: GB)
  Receive Date: 20170919
  Receipt Date: 20191231
  Transmission Date: 20200122
  Serious: Yes (Life-Threatening, Other)
  Sender: FDA-Public Use
  Company Number: GB-GLENMARK PHARMACEUTICALS-2017GMK028922

PATIENT

DRUGS (2)
  1. NOVOMIX [Concomitant]
     Active Substance: INSULIN ASPART
     Indication: DIABETES MELLITUS
     Dosage: UNK (32 UNITS AND 38 UNITS)
     Route: 065
     Dates: start: 2007
  2. GABAPENTIN. [Suspect]
     Active Substance: GABAPENTIN
     Indication: NEURALGIA
     Dosage: 100 MG, TID (FIRST COURSE FOR 6 WEEKS AND THEN PRESCRIBED SECOND COURSE FOR 8 WEEKS)
     Route: 065
     Dates: start: 201304, end: 201306

REACTIONS (2)
  - Skin induration [Not Recovered/Not Resolved]
  - Tendon rupture [Recovered/Resolved]
